FAERS Safety Report 17363373 (Version 1)
Quarter: 2020Q1

REPORT INFORMATION
  Report Type: Spontaneous
  Country: NL (occurrence: NL)
  Receive Date: 20200203
  Receipt Date: 20200203
  Transmission Date: 20200409
  Serious: Yes (Other)
  Sender: FDA-Public Use
  Company Number: NL-BAUSCH-BL-2020-002735

PATIENT
  Age: 25 Year
  Sex: Female
  Weight: 69 kg

DRUGS (7)
  1. SALBUTAMOL [Suspect]
     Active Substance: ALBUTEROL
     Indication: ASTHMA
     Route: 065
  2. COMBIVENT [Suspect]
     Active Substance: ALBUTEROL SULFATE\IPRATROPIUM BROMIDE
     Indication: ASTHMA
     Route: 065
  3. PREDNISOLONE. [Suspect]
     Active Substance: PREDNISOLONE
     Indication: PRODUCT USED FOR UNKNOWN INDICATION
     Dosage: MAINTENANCE 10-30 MG
     Route: 065
  4. QVAR [Suspect]
     Active Substance: BECLOMETHASONE DIPROPIONATE
     Indication: ASTHMA
     Route: 065
  5. RESLIZUMAB [Suspect]
     Active Substance: RESLIZUMAB
     Indication: ASTHMA
     Dosage: LAST RESLIZUMAB INFUSION RECEIVED BEFORE PREGNANCY: 09/NOV/2018?DOSE: 1 (UNIT UNSPECIFIED)
     Route: 042
     Dates: start: 20181016, end: 20181109
  6. NUCALA [Concomitant]
     Active Substance: MEPOLIZUMAB
     Indication: PRODUCT USED FOR UNKNOWN INDICATION
     Route: 065
     Dates: start: 20180502, end: 20180918
  7. FOSTER [Suspect]
     Active Substance: BECLOMETHASONE\FORMOTEROL
     Indication: ASTHMA
     Route: 065

REACTIONS (4)
  - Asthma [Unknown]
  - Maternal exposure during pregnancy [Unknown]
  - Caesarean section [Unknown]
  - Normal newborn [Unknown]

NARRATIVE: CASE EVENT DATE: 20181016
